FAERS Safety Report 10177235 (Version 2)
Quarter: 2014Q2

REPORT INFORMATION
  Report Type: Report from Study
  Country: CA (occurrence: CA)
  Receive Date: 20140516
  Receipt Date: 20140523
  Transmission Date: 20141212
  Serious: Yes (Hospitalization, Other)
  Sender: FDA-Public Use
  Company Number: CA-ABBVIE-14P-028-1236191-00

PATIENT
  Age: 67 Year
  Sex: Female

DRUGS (16)
  1. HUMIRA [Suspect]
     Indication: RHEUMATOID ARTHRITIS
     Route: 058
     Dates: start: 20070723, end: 201212
  2. HUMIRA [Suspect]
     Route: 058
     Dates: end: 20140313
  3. HUMIRA [Suspect]
     Route: 058
     Dates: start: 20140505
  4. PLAQUENIL [Concomitant]
     Indication: PRODUCT USED FOR UNKNOWN INDICATION
  5. SYMBICORT [Concomitant]
     Indication: PRODUCT USED FOR UNKNOWN INDICATION
  6. SPIRIVA [Concomitant]
     Indication: PRODUCT USED FOR UNKNOWN INDICATION
  7. OSCAL [Concomitant]
     Indication: PRODUCT USED FOR UNKNOWN INDICATION
  8. BRICANYL [Concomitant]
     Indication: PRODUCT USED FOR UNKNOWN INDICATION
  9. GLYCAZIDE [Concomitant]
     Indication: PRODUCT USED FOR UNKNOWN INDICATION
  10. LOZIDE [Concomitant]
     Indication: PRODUCT USED FOR UNKNOWN INDICATION
  11. COZAAR [Concomitant]
     Indication: PRODUCT USED FOR UNKNOWN INDICATION
  12. MS CONTIN [Concomitant]
     Indication: PRODUCT USED FOR UNKNOWN INDICATION
  13. SERAX [Concomitant]
     Indication: PRODUCT USED FOR UNKNOWN INDICATION
  14. PANTOLOC [Concomitant]
     Indication: PRODUCT USED FOR UNKNOWN INDICATION
  15. LYRICA [Concomitant]
     Indication: PRODUCT USED FOR UNKNOWN INDICATION
     Dosage: 75-225
  16. EFFEXOR [Concomitant]
     Indication: PRODUCT USED FOR UNKNOWN INDICATION

REACTIONS (3)
  - Foot deformity [Not Recovered/Not Resolved]
  - Lobar pneumonia [Recovered/Resolved]
  - Nasopharyngitis [Recovered/Resolved]
